FAERS Safety Report 4501411-6 (Version None)
Quarter: 2004Q4

REPORT INFORMATION
  Report Type: 
  Country: None (occurrence: None)
  Receive Date: 20040928
  Receipt Date: 20040818
  Transmission Date: 20050328
  Serious: No
  Sender: FDA-Public Use
  Company Number: 04P-163-0270875-00

PATIENT
  Age: 61 Year
  Sex: Female

DRUGS (6)
  1. HUMIRA [Suspect]
     Indication: RHEUMATOID ARTHRITIS
     Dosage: 40 MG, SUBCUTANEOUS
     Route: 058
     Dates: start: 20030601
  2. HYDROXYCHLOROQUINE PHOSPHATE [Concomitant]
  3. LEVOTHYROXINE SODIUM [Concomitant]
  4. ALENDRONATE SODIUM [Concomitant]
  5. ESOMEPRAZOLE [Concomitant]
  6. NABUMETONE [Concomitant]

REACTIONS (2)
  - ARTHRALGIA [None]
  - OSTEOMYELITIS [None]
